FAERS Safety Report 10017269 (Version 2)
Quarter: 2014Q1

REPORT INFORMATION
  Report Type: Spontaneous
  Country: RU (occurrence: RU)
  Receive Date: 20140318
  Receipt Date: 20140318
  Transmission Date: 20141002
  Serious: Yes (Life-Threatening, Other)
  Sender: FDA-Public Use
  Company Number: RU-ROCHE-1347265

PATIENT
  Age: 44 Year
  Sex: Female
  Weight: 60 kg

DRUGS (2)
  1. HERCEPTIN [Suspect]
     Indication: BREAST CANCER
     Route: 042
     Dates: start: 20131003
  2. HERCEPTIN [Suspect]
     Route: 042
     Dates: start: 2013, end: 20131024

REACTIONS (17)
  - Cardiac failure [Recovering/Resolving]
  - Hydrothorax [Not Recovered/Not Resolved]
  - Cardiomyopathy [Unknown]
  - Vascular calcification [Unknown]
  - Cholecystitis chronic [Not Recovered/Not Resolved]
  - Hyperbilirubinaemia [Not Recovered/Not Resolved]
  - Essential hypertension [Unknown]
  - Liver disorder [Unknown]
  - Muscle spasticity [Unknown]
  - Lymphadenopathy [Not Recovered/Not Resolved]
  - Lymphadenopathy mediastinal [Not Recovered/Not Resolved]
  - Pulmonary fibrosis [Not Recovered/Not Resolved]
  - Bone loss [Not Recovered/Not Resolved]
  - Polycythaemia [Not Recovered/Not Resolved]
  - Haemoglobin increased [Not Recovered/Not Resolved]
  - Thrombocytosis [Not Recovered/Not Resolved]
  - Dyspnoea [Unknown]
